FAERS Safety Report 10906360 (Version 1)
Quarter: 2015Q1

REPORT INFORMATION
  Report Type: Spontaneous
  Country: ZA (occurrence: ZA)
  Receive Date: 20150312
  Receipt Date: 20150312
  Transmission Date: 20150721
  Serious: Yes (Other)
  Sender: FDA-Public Use
  Company Number: PHHY2015ZA021682

PATIENT
  Age: 37 Year
  Sex: Female
  Weight: 116.8 kg

DRUGS (1)
  1. TASIGNA [Suspect]
     Active Substance: NILOTINIB
     Indication: CHRONIC MYELOID LEUKAEMIA
     Dosage: UNK OT, BID
     Route: 065
     Dates: start: 20140707

REACTIONS (16)
  - Herpes simplex [Recovering/Resolving]
  - Dyspepsia [Unknown]
  - Nausea [Recovering/Resolving]
  - Abdominal tenderness [Unknown]
  - Rash [Recovering/Resolving]
  - Headache [Recovering/Resolving]
  - Abdominal distension [Recovering/Resolving]
  - Myalgia [Recovering/Resolving]
  - Vomiting [Unknown]
  - Pruritus [Recovering/Resolving]
  - Malignant neoplasm progression [Unknown]
  - Pyrexia [Recovering/Resolving]
  - Diarrhoea [Unknown]
  - Chronic myeloid leukaemia [Unknown]
  - Abdominal pain upper [Unknown]
  - Night sweats [Unknown]

NARRATIVE: CASE EVENT DATE: 20140709
